FAERS Safety Report 8785188 (Version 3)
Quarter: 2013Q1

REPORT INFORMATION
  Report Type: Spontaneous
  Country: US (occurrence: US)
  Receive Date: 20120914
  Receipt Date: 20130313
  Transmission Date: 20140127
  Serious: Yes (Hospitalization, Disabling, Other)
  Sender: FDA-Public Use
  Company Number: US-009507513-1112USA01471

PATIENT
  Sex: Female
  Weight: 58.96 kg

DRUGS (6)
  1. FOSAMAX [Suspect]
     Indication: OSTEOPOROSIS
     Dosage: 70 MG, UNK
     Route: 048
     Dates: start: 1996, end: 2008
  2. FOSAMAX [Suspect]
     Dosage: 10 MG, UNK
     Route: 048
  3. FOSAMAX [Suspect]
     Indication: OSTEOPOROSIS
     Dosage: 70 MG, UNK
     Route: 048
     Dates: start: 2008, end: 2009
  4. VITAMINS (UNSPECIFIED) [Concomitant]
     Dosage: UNK
  5. VITAMIN D (UNSPECIFIED) [Concomitant]
     Dosage: 600 MG, UNK
  6. ENALAPRIL MALEATE [Concomitant]
     Indication: BLOOD PRESSURE
     Dosage: UNK
     Dates: start: 1992

REACTIONS (11)
  - Femur fracture [Unknown]
  - Femur fracture [Unknown]
  - Fall [Unknown]
  - Muscular dystrophy [Unknown]
  - Closed fracture manipulation [Unknown]
  - Femoral neck fracture [Unknown]
  - Fall [Unknown]
  - Tooth extraction [Unknown]
  - Prescribed overdose [Unknown]
  - Musculoskeletal disorder [Unknown]
  - Pain in extremity [Unknown]
